FAERS Safety Report 5427833-7 (Version None)
Quarter: 2007Q3

REPORT INFORMATION
  Report Type: 
  Country: None (occurrence: None)
  Receive Date: 20070828
  Receipt Date: 20070817
  Transmission Date: 20080115
  Serious: Yes (Hospitalization, Other)
  Sender: FDA-Public Use
  Company Number: US-ELI_LILLY_AND_COMPANY-US200708003777

PATIENT
  Sex: Female

DRUGS (6)
  1. FORTEO [Suspect]
     Dosage: 20 UG, DAILY (1/D)
     Dates: start: 20060101
  2. ULTRAM [Concomitant]
     Dosage: 50 MG, 2/D
  3. ULTRAM [Concomitant]
     Dosage: 50 MG, 3/D
  4. NEURONTIN [Concomitant]
     Dosage: 600 MG, 3/D
  5. CENESTIN [Concomitant]
     Indication: HORMONE REPLACEMENT THERAPY
     Dosage: 0.45 MG, DAILY (1/D)
  6. EFFEXOR [Concomitant]
     Dosage: 75 MG, DAILY (1/D)

REACTIONS (4)
  - ARTHRITIS [None]
  - BACK DISORDER [None]
  - HYPERTHYROIDISM [None]
  - POST PROCEDURAL COMPLICATION [None]
